FAERS Safety Report 16643361 (Version 2)
Quarter: 2019Q3

REPORT INFORMATION
  Report Type: Spontaneous
  Country: US (occurrence: US)
  Receive Date: 20190729
  Receipt Date: 20190806
  Transmission Date: 20191004
  Serious: No
  Sender: FDA-Public Use
  Company Number: US-PFIZER INC-2019322932

PATIENT
  Age: 50 Year
  Sex: Male
  Weight: 83.91 kg

DRUGS (1)
  1. EUCRISA [Suspect]
     Active Substance: CRISABOROLE
     Indication: ECZEMA
     Dosage: APPLY TO AFFECT AREA AS NEEDED FOR ECZEMA
     Dates: start: 201907, end: 20190722

REACTIONS (5)
  - Application site swelling [Recovering/Resolving]
  - Application site pruritus [Unknown]
  - Application site urticaria [Unknown]
  - Application site erythema [Recovering/Resolving]
  - Application site pain [Recovered/Resolved]

NARRATIVE: CASE EVENT DATE: 201907
